FAERS Safety Report 7005650-4 (Version None)
Quarter: 2010Q3

REPORT INFORMATION
  Report Type: 
  Country: None (occurrence: None)
  Receive Date: 20100921
  Receipt Date: 20100909
  Transmission Date: 20110219
  Serious: Yes (Hospitalization)
  Sender: FDA-Public Use
  Company Number: B0630399A

PATIENT
  Sex: Female
  Weight: 55 kg

DRUGS (18)
  1. RELENZA [Suspect]
     Dosage: 20MG PER DAY
     Route: 055
     Dates: start: 20100127, end: 20100131
  2. ACETAMINOPHEN [Concomitant]
     Indication: ANTIPYRESIS
     Route: 048
     Dates: start: 20100127, end: 20100131
  3. LAXOBERON [Concomitant]
     Indication: CONSTIPATION
     Route: 048
     Dates: start: 20100129
  4. VOLTAREN [Concomitant]
     Indication: ANALGESIC THERAPY
     Dosage: 1IUAX PER DAY
     Route: 054
     Dates: start: 20100629, end: 20100629
  5. DASEN [Concomitant]
     Indication: ANTIINFLAMMATORY THERAPY
     Dosage: 30MG PER DAY
     Route: 048
     Dates: start: 20100630, end: 20100706
  6. UNKNOWN DRUG [Concomitant]
     Dosage: 3IUAX PER DAY
     Route: 048
     Dates: start: 20100630, end: 20100706
  7. CEFZON [Concomitant]
     Indication: INFECTION
     Dosage: 300MG PER DAY
     Route: 048
     Dates: start: 20100630, end: 20100706
  8. SELBEX [Concomitant]
     Dosage: 150MG PER DAY
     Dates: start: 20100630, end: 20100706
  9. FERRICON [Concomitant]
     Dosage: 150MG PER DAY
     Route: 042
     Dates: start: 20100626, end: 20100626
  10. ROPIVACAINE [Concomitant]
     Dosage: 2IUAX PER DAY
     Route: 042
     Dates: start: 20100626, end: 20100626
  11. PROPOFOL [Concomitant]
     Dosage: 1IUAX PER DAY
     Route: 042
     Dates: start: 20100626, end: 20100626
  12. ROCURONIUM BROMIDE [Concomitant]
     Dosage: 50MG PER DAY
     Route: 042
     Dates: start: 20100626, end: 20100626
  13. PENTAZOCINE LACTATE [Concomitant]
     Dosage: 30MG PER DAY
     Route: 042
     Dates: start: 20100626, end: 20100626
  14. DIAZEPAM [Concomitant]
     Dosage: 10MG PER DAY
     Route: 042
     Dates: start: 20100626, end: 20100626
  15. ATROPINE [Concomitant]
     Dosage: 1MG PER DAY
     Route: 042
     Dates: start: 20100626, end: 20100626
  16. NEOSTIGMINE METHYLSULPHATE [Concomitant]
     Dosage: 1MG PER DAY
     Route: 042
     Dates: start: 20100626, end: 20100626
  17. ORGARAN [Concomitant]
     Indication: DISSEMINATED INTRAVASCULAR COAGULATION
     Dosage: 1.25IU3 PER DAY
     Route: 042
     Dates: start: 20100626, end: 20100627
  18. STADOL [Concomitant]
     Dosage: 1IUAX PER DAY
     Route: 042
     Dates: start: 20100626, end: 20100626

REACTIONS (2)
  - DRUG EXPOSURE DURING PREGNANCY [None]
  - THREATENED LABOUR [None]
